FAERS Safety Report 4862312-7 (Version None)
Quarter: 2005Q4

REPORT INFORMATION
  Report Type: 
  Country: None (occurrence: None)
  Receive Date: 20051128
  Receipt Date: 20050908
  Transmission Date: 20060501
  Serious: No
  Sender: FDA-Public Use
  Company Number: 217605

PATIENT
  Sex: Male

DRUGS (1)
  1. RAPTIVA [Suspect]
     Indication: PSORIASIS
     Dosage: 125 MG, 1/WEEK, SUBCUTANEOUS
     Route: 058
     Dates: start: 20050401

REACTIONS (1)
  - PSORIASIS [None]
